FAERS Safety Report 19667050 (Version 1)
Quarter: 2021Q3

REPORT INFORMATION
  Report Type: Spontaneous
  Country: US (occurrence: US)
  Receive Date: 20210806
  Receipt Date: 20210806
  Transmission Date: 20211014
  Serious: No
  Sender: FDA-Public Use
  Company Number: US-KVK-TECH, INC-20201100011

PATIENT
  Age: 68 Year
  Sex: Female
  Weight: 86.17 kg

DRUGS (2)
  1. BENZPHETAMINE HYDROCHLORIDE TABLETS [Suspect]
     Active Substance: BENZPHETAMINE HYDROCHLORIDE
     Indication: WEIGHT CONTROL
     Dosage: 50 MILLIGRAM 1 TABLET, BID
  2. DIDREX [Concomitant]
     Active Substance: BENZPHETAMINE HYDROCHLORIDE

REACTIONS (1)
  - Drug ineffective [Not Recovered/Not Resolved]

NARRATIVE: CASE EVENT DATE: 20200813
